FAERS Safety Report 5808599-5 (Version None)
Quarter: 2008Q3

REPORT INFORMATION
  Report Type: 
  Country: None (occurrence: None)
  Receive Date: 20080714
  Receipt Date: 20080704
  Transmission Date: 20090109
  Serious: Yes (Other)
  Sender: FDA-Public Use
  Company Number: FR-AMGEN-UK292135

PATIENT
  Sex: Female

DRUGS (5)
  1. NEULASTA [Suspect]
     Indication: CHEMOTHERAPY
     Route: 058
     Dates: start: 20080501
  2. AVASTIN [Concomitant]
     Route: 042
     Dates: start: 20080430, end: 20080610
  3. FLUOROURACIL [Concomitant]
     Route: 042
     Dates: start: 20080430, end: 20080610
  4. EPIRUBICIN [Concomitant]
     Route: 042
     Dates: start: 20080430, end: 20080610
  5. CYCLOPHOSPHAMIDE [Concomitant]
     Route: 042
     Dates: start: 20080430, end: 20080610

REACTIONS (5)
  - FEEDING DISORDER [None]
  - FUNGAL INFECTION [None]
  - GINGIVITIS [None]
  - NEUTROPENIA [None]
  - TRISMUS [None]
